FAERS Safety Report 6006828-9 (Version None)
Quarter: 2008Q4

REPORT INFORMATION
  Report Type: 
  Country: None (occurrence: None)
  Receive Date: 20081217
  Receipt Date: 20071019
  Transmission Date: 20090506
  Serious: No
  Sender: FDA-Public Use
  Company Number: US-ASTRAZENECA-2007UW24428

PATIENT
  Age: 78 Year
  Sex: Female
  Weight: 53.1 kg

DRUGS (2)
  1. CRESTOR [Suspect]
     Indication: BLOOD CHOLESTEROL INCREASED
     Route: 048
  2. LEVOXYL [Concomitant]

REACTIONS (2)
  - ABDOMINAL DISTENSION [None]
  - PAIN IN EXTREMITY [None]
